FAERS Safety Report 8320948-5 (Version None)
Quarter: 2012Q2

REPORT INFORMATION
  Report Type: 
  Country: None (occurrence: None)
  Receive Date: 20120430
  Receipt Date: 20120424
  Transmission Date: 20120825
  Serious: Yes (Other)
  Sender: FDA-Public Use
  Company Number: PHHY2010CA19473

PATIENT
  Sex: Female

DRUGS (9)
  1. SYNTHROID [Concomitant]
  2. TOPIRAMATE [Concomitant]
  3. NEXIUM [Concomitant]
  4. EFFEXOR XR [Concomitant]
  5. WELLBUTRIN XL [Concomitant]
     Dosage: 300
  6. VITAMIN D [Concomitant]
     Dosage: 800 IU
     Dates: start: 19900101
  7. ZOLEDRONOC ACID [Suspect]
     Indication: OSTEOPOROSIS
     Dosage: 5 MG/100ML, YEARLY
     Route: 042
     Dates: start: 20091110
  8. CALCIUM [Concomitant]
     Dosage: 1000 MG
     Dates: start: 19900101
  9. CLONAZEPAM [Concomitant]

REACTIONS (4)
  - FALL [None]
  - SKELETAL INJURY [None]
  - FOOT FRACTURE [None]
  - RIB FRACTURE [None]
